FAERS Safety Report 6647353-1 (Version None)
Quarter: 2010Q1

REPORT INFORMATION
  Report Type: 
  Country: None (occurrence: None)
  Receive Date: 20100323
  Receipt Date: 20100315
  Transmission Date: 20100710
  Serious: Yes (Hospitalization)
  Sender: FDA-Public Use
  Company Number: B0642133A

PATIENT
  Age: 77 Year
  Sex: Male

DRUGS (4)
  1. VENTOLIN [Suspect]
     Indication: BRONCHITIS
     Route: 055
     Dates: start: 20091221, end: 20091221
  2. METFORMIN HCL [Concomitant]
  3. GLIMEPIRIDE [Concomitant]
     Indication: DIABETES MELLITUS
  4. ENALAPRIL MALEATE [Concomitant]
     Indication: HYPERTENSION

REACTIONS (1)
  - ACUTE MYOCARDIAL INFARCTION [None]
